FAERS Safety Report 11750619 (Version 1)
Quarter: 2015Q4

REPORT INFORMATION
  Report Type: Spontaneous
  Country: US (occurrence: None)
  Receive Date: 20151117
  Receipt Date: 20151117
  Transmission Date: 20160304
  Serious: No
  Sender: FDA-Public Use
  Company Number: None

PATIENT
  Age: 45 Year
  Sex: Male
  Weight: 104.78 kg

DRUGS (3)
  1. LEXISCAN [Suspect]
     Active Substance: REGADENOSON
     Indication: CARDIAC STRESS TEST
     Route: 042
     Dates: start: 20151113, end: 20151113
  2. SESTAMIBI [Concomitant]
     Active Substance: TETRAKIS(2-METHOXYISOBUTYLISOCYANIDE)COPPER(I) TETRAFLUOROBORATE
  3. TECHNETIUM TC-99M MPI MDP [Concomitant]
     Active Substance: TECHNETIUM TC-99M MEDRONATE

REACTIONS (5)
  - Seizure [None]
  - Sinus arrest [None]
  - Dyspnoea [None]
  - Presyncope [None]
  - Flushing [None]

NARRATIVE: CASE EVENT DATE: 20151113
